FAERS Safety Report 7605556-3 (Version None)
Quarter: 2011Q3

REPORT INFORMATION
  Report Type: 
  Country: None (occurrence: None)
  Receive Date: 20110713
  Receipt Date: 20110630
  Transmission Date: 20111222
  Serious: Yes (Hospitalization, Other)
  Sender: FDA-Public Use
  Company Number: US-BAYER-201036674NA

PATIENT
  Age: 30 Year
  Sex: Female
  Weight: 72.562 kg

DRUGS (2)
  1. YASMIN [Suspect]
     Indication: CONTRACEPTION
     Dosage: UNK UNK, UNK
     Route: 048
     Dates: start: 20080201
  2. PARLODEL [Concomitant]
     Indication: BLOOD PROLACTIN INCREASED

REACTIONS (11)
  - DYSPEPSIA [None]
  - ABDOMINAL PAIN UPPER [None]
  - DIARRHOEA [None]
  - CHOLELITHIASIS [None]
  - BACK PAIN [None]
  - CHOLECYSTITIS CHRONIC [None]
  - GALLBLADDER DISORDER [None]
  - PAIN [None]
  - VOMITING [None]
  - WEIGHT DECREASED [None]
  - INSOMNIA [None]
